FAERS Safety Report 11696256 (Version 1)
Quarter: 2015Q4

REPORT INFORMATION
  Report Type: Spontaneous
  Country: DE (occurrence: DE)
  Receive Date: 20151104
  Receipt Date: 20151104
  Transmission Date: 20160304
  Serious: Yes (Hospitalization)
  Sender: FDA-Public Use
  Company Number: DE-PFIZER INC-2015333283

PATIENT
  Age: 74 Year
  Sex: Male
  Weight: 77 kg

DRUGS (3)
  1. TORASEMID [Concomitant]
     Active Substance: TORSEMIDE
     Dosage: UNK
     Dates: start: 20150930
  2. CRIZOTINIB [Suspect]
     Active Substance: CRIZOTINIB
     Indication: LUNG ADENOCARCINOMA
     Dosage: 250 MG, 2X/DAY
     Dates: start: 20150518
  3. CRIZOTINIB [Suspect]
     Active Substance: CRIZOTINIB
     Dosage: 200 MG, 2X/DAY
     Dates: end: 20151016

REACTIONS (4)
  - Ischaemic limb pain [Not Recovered/Not Resolved]
  - Thrombosis [Not Recovered/Not Resolved]
  - Oedema peripheral [Not Recovered/Not Resolved]
  - Skin tightness [Not Recovered/Not Resolved]

NARRATIVE: CASE EVENT DATE: 20150613
